FAERS Safety Report 9361479 (Version 4)
Quarter: 2013Q3

REPORT INFORMATION
  Report Type: Spontaneous
  Country: IT (occurrence: IT)
  Receive Date: 20130621
  Receipt Date: 20130808
  Transmission Date: 20140515
  Serious: Yes (Life-Threatening, Hospitalization, Other)
  Sender: FDA-Public Use
  Company Number: IT-009507513-1306ITA009246

PATIENT
  Age: 53 Year
  Sex: Female

DRUGS (5)
  1. EFFICIB [Suspect]
     Indication: TYPE 2 DIABETES MELLITUS
     Dosage: 2 DF, QD
     Route: 048
     Dates: start: 20111212, end: 20130530
  2. GLUCOBAY [Concomitant]
     Dosage: 1 DF, QD
     Dates: start: 20121204, end: 20130530
  3. METFONORM [Concomitant]
     Dosage: 500 MG, QD
     Route: 048
     Dates: start: 20121204, end: 20130530
  4. HUMALOG [Concomitant]
     Dosage: 14 IU, QD
     Dates: start: 20121204
  5. TORVAST [Concomitant]
     Dosage: 20 MG, QD
     Route: 048

REACTIONS (3)
  - Adenocarcinoma pancreas [Not Recovered/Not Resolved]
  - Melanosis coli [Unknown]
  - Pancreatectomy [Unknown]
